FAERS Safety Report 9722643 (Version 1)
Quarter: 2013Q4

REPORT INFORMATION
  Report Type: Spontaneous
  Country: US (occurrence: US)
  Receive Date: 20131202
  Receipt Date: 20131202
  Transmission Date: 20140711
  Serious: No
  Sender: FDA-Public Use
  Company Number: US-PFIZER INC-2013339448

PATIENT
  Age: 31 Year
  Sex: Female
  Weight: 62.59 kg

DRUGS (1)
  1. ADVIL [Suspect]
     Indication: PAIN
     Dosage: UNK
     Route: 048
     Dates: end: 1997

REACTIONS (2)
  - Overdose [Unknown]
  - Drug ineffective [Unknown]
